FAERS Safety Report 16300999 (Version 2)
Quarter: 2019Q2

REPORT INFORMATION
  Report Type: Spontaneous
  Country: AU (occurrence: AU)
  Receive Date: 20190510
  Receipt Date: 20190528
  Transmission Date: 20190711
  Serious: Yes (Hospitalization)
  Sender: FDA-Public Use
  Company Number: AU-SUNOVION-2019DSP005579

PATIENT
  Age: 68 Year
  Sex: Female

DRUGS (6)
  1. SODIUM VALPROATE SANDOZ [Concomitant]
     Active Substance: VALPROATE SODIUM
     Indication: DEPRESSION
     Dosage: 200MG GIVEN IN THE MORNING, 500MG GIVEN AT NIGHT
     Route: 065
     Dates: start: 2013
  2. LATUDA [Suspect]
     Active Substance: LURASIDONE HYDROCHLORIDE
     Indication: SCHIZOPHRENIA
     Dosage: 80 MG, QD
     Route: 048
     Dates: start: 201712
  3. FLUOXETINE [Concomitant]
     Active Substance: FLUOXETINE HYDROCHLORIDE
     Indication: DEPRESSION
     Dosage: GIVEN IN THE MORNING
     Route: 065
     Dates: start: 2013
  4. GALANTAMINE. [Concomitant]
     Active Substance: GALANTAMINE
     Indication: DEMENTIA ALZHEIMER^S TYPE
     Dosage: GIVEN IN THE MORNING
     Route: 065
     Dates: start: 2015
  5. LATUDA [Suspect]
     Active Substance: LURASIDONE HYDROCHLORIDE
     Dosage: 80 MG, QD
     Route: 050
     Dates: start: 20190401
  6. LORAZEPAM. [Concomitant]
     Active Substance: LORAZEPAM
     Indication: ANXIETY
     Dosage: 1 MG, TID
     Route: 065
     Dates: start: 2013

REACTIONS (6)
  - Product use issue [Unknown]
  - Dysphagia [Not Recovered/Not Resolved]
  - Sleep disorder [Not Recovered/Not Resolved]
  - Wrong technique in product usage process [Unknown]
  - Malnutrition [Recovered/Resolved]
  - Weight decreased [Recovered/Resolved]

NARRATIVE: CASE EVENT DATE: 201903
